FAERS Safety Report 7358301-3 (Version None)
Quarter: 2011Q1

REPORT INFORMATION
  Report Type: 
  Country: None (occurrence: None)
  Receive Date: 20110317
  Receipt Date: 20110302
  Transmission Date: 20110831
  Serious: Yes (Hospitalization)
  Sender: FDA-Public Use
  Company Number: PHHY2011DE17080

PATIENT
  Sex: Male
  Weight: 81 kg

DRUGS (4)
  1. AFINITOR [Suspect]
     Indication: RENAL CELL CARCINOMA
     Dosage: 10MG DAILY
     Route: 048
     Dates: start: 20110217
  2. DEXAMETHASONE [Concomitant]
     Indication: METASTATIC NEOPLASM
     Dosage: 8 MG, DAILY
     Route: 042
     Dates: start: 20110228
  3. PANTOZOL [Concomitant]
     Dosage: 80 MG, DAILY
     Route: 042
     Dates: start: 20110228
  4. OSYROL-LASIX [Concomitant]
     Indication: POLYURIA
     Dosage: 1000 MG, DAILY
     Route: 042
     Dates: start: 20110228

REACTIONS (3)
  - FAECES DISCOLOURED [None]
  - ANAEMIA [None]
  - GASTRODUODENAL ULCER [None]
